FAERS Safety Report 14378201 (Version 2)
Quarter: 2024Q1

REPORT INFORMATION
  Report Type: Report from Study
  Country: US (occurrence: US)
  Receive Date: 20180111
  Receipt Date: 20240311
  Transmission Date: 20240410
  Serious: No
  Sender: FDA-Public Use
  Company Number: US-SHIRE-US201800577

PATIENT
  Age: 48 Year
  Sex: Female

DRUGS (1)
  1. VELAGLUCERASE ALFA [Suspect]
     Active Substance: VELAGLUCERASE ALFA
     Indication: Gaucher^s disease
     Dosage: UNK UNK, Q2WEEKS
     Route: 042
     Dates: start: 20100624

REACTIONS (2)
  - Arthralgia [Recovering/Resolving]
  - Product dose omission issue [Unknown]

NARRATIVE: CASE EVENT DATE: 20171113
